FAERS Safety Report 17218105 (Version 2)
Quarter: 2020Q1

REPORT INFORMATION
  Report Type: Report from Study
  Country: TH (occurrence: TH)
  Receive Date: 20191231
  Receipt Date: 20200106
  Transmission Date: 20200409
  Serious: Yes (Other)
  Sender: FDA-Public Use
  Company Number: TH-VIIV HEALTHCARE LIMITED-TH2019GSK236228

PATIENT
  Age: 32 Year
  Sex: Male
  Weight: 65.3 kg

DRUGS (2)
  1. ABACAVIR SULFATE + LAMIVUDINE [Suspect]
     Active Substance: ABACAVIR SULFATE\LAMIVUDINE
     Indication: ACUTE HIV INFECTION
     Dosage: 600/300 MG
     Route: 048
     Dates: start: 20190130, end: 20191227
  2. DOLUTEGRAVIR [Suspect]
     Active Substance: DOLUTEGRAVIR
     Indication: ACUTE HIV INFECTION
     Dosage: 50 MG
     Dates: start: 20190130, end: 20191227

REACTIONS (1)
  - Hepatic enzyme increased [Unknown]

NARRATIVE: CASE EVENT DATE: 20191226
